FAERS Safety Report 10575104 (Version 3)
Quarter: 2014Q4

REPORT INFORMATION
  Report Type: Spontaneous
  Country: CA (occurrence: CA)
  Receive Date: 20141111
  Receipt Date: 20141205
  Transmission Date: 20150529
  Serious: Yes (Life-Threatening)
  Sender: FDA-Public Use
  Company Number: CA-BEH-2014046273

PATIENT
  Age: 76 Year
  Sex: Male
  Weight: 65 kg

DRUGS (10)
  1. ALBUMIN 5% / ALBUREX [Suspect]
     Active Substance: ALBUMIN (HUMAN)
     Dates: start: 20141021
  2. ALBUMIN 5% / ALBUREX [Suspect]
     Active Substance: ALBUMIN (HUMAN)
     Dates: start: 20141030
  3. DECADRON [Concomitant]
     Active Substance: DEXAMETHASONE
     Dosage: WEANING. DID NOT TAKE ANY MEDS IN THE WEEK PRIOR TO EVENT
     Route: 048
  4. ALBUMIN 5% / ALBUREX [Suspect]
     Active Substance: ALBUMIN (HUMAN)
     Indication: CHRONIC INFLAMMATORY DEMYELINATING POLYRADICULONEUROPATHY
     Dates: start: 20141103
  5. METFORMIN [Concomitant]
     Active Substance: METFORMIN HYDROCHLORIDE
     Indication: TYPE 2 DIABETES MELLITUS
     Dosage: DID NOT TAKE ANY MEDS IN THE WEEK PRIOR TO EVENT
     Route: 048
  6. ALENDRONATE [Concomitant]
     Active Substance: ALENDRONATE SODIUM
     Dosage: DID NOT TAKE ANY MEDS IN THE WEEK PRIOR TO EVENT
     Route: 048
  7. TECTA [Concomitant]
     Active Substance: PANTOPRAZOLE MAGNESIUM
     Dosage: DID NOT TAKE ANY MEDS IN THE WEEK PRIOR TO EVENT
     Route: 048
  8. ALBUMIN 5% / ALBUREX [Suspect]
     Active Substance: ALBUMIN (HUMAN)
     Dates: start: 20141027
  9. ALBUMIN 5% / ALBUREX [Suspect]
     Active Substance: ALBUMIN (HUMAN)
     Dates: start: 20141024
  10. CELLCEPT [Concomitant]
     Active Substance: MYCOPHENOLATE MOFETIL\MYCOPHENOLATE MOFETIL HYDROCHLORIDE
     Indication: CHRONIC INFLAMMATORY DEMYELINATING POLYRADICULONEUROPATHY
     Dosage: DID NOT TAKE ANY MEDS IN THE WEEK PRIOR TO EVENT
     Route: 048

REACTIONS (14)
  - Chills [Recovered/Resolved]
  - Tonic clonic movements [Recovered/Resolved]
  - Urticaria [Recovered/Resolved]
  - Flushing [Recovered/Resolved]
  - Wheezing [Recovered/Resolved]
  - Anaphylactic reaction [Recovered/Resolved]
  - Hypersensitivity [Recovered/Resolved]
  - Cyanosis [Recovered/Resolved]
  - Oxygen saturation decreased [Recovered/Resolved]
  - Depressed level of consciousness [Recovered/Resolved]
  - Rash [Recovered/Resolved]
  - Seizure [Recovered/Resolved]
  - Hypotension [Recovered/Resolved]
  - Dyspnoea [Recovered/Resolved]

NARRATIVE: CASE EVENT DATE: 20141103
